FAERS Safety Report 13897301 (Version 4)
Quarter: 2024Q2

REPORT INFORMATION
  Report Type: Spontaneous
  Country: FR (occurrence: FR)
  Receive Date: 20170823
  Receipt Date: 20240417
  Transmission Date: 20240716
  Serious: Yes (Other)
  Sender: FDA-Public Use
  Company Number: FR-MLMSERVICE-20170810-0847521-1

PATIENT
  Age: 6 Year
  Sex: Female

DRUGS (9)
  1. METHYLPREDNISOLONE SODIUM SUCCINATE [Suspect]
     Active Substance: METHYLPREDNISOLONE SODIUM SUCCINATE
     Indication: Transplant rejection
     Dosage: 10 MG/KG(1CORTICOSTEROID PULSE ON DAY 9 OF 2ND TRANSPLANTATION, ON DAY 13, 3CORTICOSTEROID PULSES)
  2. METHYLPREDNISOLONE SODIUM SUCCINATE [Suspect]
     Active Substance: METHYLPREDNISOLONE SODIUM SUCCINATE
     Dosage: 10 MG/KG, 3X/DAY (3 CORTICOSTEROID PULSES)
  3. BASILIXIMAB [Suspect]
     Active Substance: BASILIXIMAB
     Indication: Immunosuppressant drug therapy
     Dosage: ON DAYS 1 AND 4 AFTER FIRST TRANSPLANTATION
  4. TACROLIMUS [Suspect]
     Active Substance: TACROLIMUS
     Indication: Immunosuppressant drug therapy
     Dosage: UNK
  5. MYCOPHENOLATE MOFETIL [Suspect]
     Active Substance: MYCOPHENOLATE MOFETIL
     Indication: Immunosuppressant drug therapy
     Dosage: UNK
  6. CASPOFUNGIN [Concomitant]
     Active Substance: CASPOFUNGIN
     Indication: Antifungal prophylaxis
     Dosage: 60 MG/M2, UNK (50 MG)
  7. CASPOFUNGIN [Concomitant]
     Active Substance: CASPOFUNGIN
     Dosage: 30 MG/M2, UNK (50MG)
  8. FLUCONAZOLE [Concomitant]
     Active Substance: FLUCONAZOLE
     Indication: Antifungal prophylaxis
     Dosage: 3 MG/KG, DAILY
     Route: 042
  9. AMPHOTERICIN B [Concomitant]
     Active Substance: AMPHOTERICIN B
     Dosage: 50 MG/KG, DAILY
     Route: 048

REACTIONS (1)
  - Disseminated coccidioidomycosis [Recovered/Resolved]
